FAERS Safety Report 5656233-X (Version None)
Quarter: 2008Q1

REPORT INFORMATION
  Report Type: 
  Country: None (occurrence: None)
  Receive Date: 20080305
  Receipt Date: 20080219
  Transmission Date: 20080703
  Serious: Yes (Disabling)
  Sender: FDA-Public Use
  Company Number: 2008S1002815

PATIENT
  Age: 71 Year
  Sex: Female

DRUGS (12)
  1. LISINOPRIL [Suspect]
     Indication: HYPERTENSION
     Dosage: 20 MG
     Dates: start: 20080201
  2. ASPIRIN [Concomitant]
  3. ATENOLOL [Concomitant]
  4. CO-CODAMOL [Concomitant]
  5. HYOSCINE HBR HYT [Concomitant]
  6. ISMN [Concomitant]
  7. LEVOTHYROXINE SODIUM [Concomitant]
  8. LOSARTAN POTASSIUM [Concomitant]
  9. MOVELAT [Concomitant]
  10. PIZOTIFEN [Concomitant]
  11. SERTRALINE [Concomitant]
  12. SIMVASTATIN [Concomitant]

REACTIONS (3)
  - HYPERSENSITIVITY [None]
  - LIP SWELLING [None]
  - RASH PRURITIC [None]
